FAERS Safety Report 15036186 (Version 1)
Quarter: 2018Q2

REPORT INFORMATION
  Report Type: Spontaneous
  Country: CA (occurrence: CA)
  Receive Date: 20180620
  Receipt Date: 20180620
  Transmission Date: 20180711
  Serious: Yes (Other)
  Sender: FDA-Public Use
  Company Number: CA-PURDUE PHARMA-CAN-2018-0008746

PATIENT
  Age: 6 Year
  Sex: Male

DRUGS (5)
  1. BIPHENTIN [Suspect]
     Active Substance: METHYLPHENIDATE
     Indication: ATTENTION DEFICIT/HYPERACTIVITY DISORDER
     Dosage: 10 MG, UNK
     Route: 048
  2. APO-AMOXI [Interacting]
     Active Substance: AMOXICILLIN
     Indication: OTITIS MEDIA
     Dosage: 9.4 ML, UNK
     Route: 065
  3. APO-AMOXI [Interacting]
     Active Substance: AMOXICILLIN
     Dosage: 17 ML, UNK
     Route: 065
  4. AMOXICILLIN SODIUM W/CLAVULANATE POTASSIUM [Interacting]
     Active Substance: AMOXICILLIN\CLAVULANATE POTASSIUM
     Indication: OTITIS MEDIA
     Dosage: 5.9 ML, UNK
     Route: 065
  5. APO-METHYLPHENIDATE SR [Interacting]
     Active Substance: METHYLPHENIDATE
     Indication: PRODUCT USED FOR UNKNOWN INDICATION
     Dosage: 15 MG, UNK
     Route: 048

REACTIONS (6)
  - Drug ineffective [Recovered/Resolved]
  - Otitis media [Recovered/Resolved]
  - Impulsive behaviour [Recovered/Resolved]
  - Off label use [Recovered/Resolved]
  - Aggression [Recovered/Resolved]
  - Drug interaction [Recovered/Resolved]
